FAERS Safety Report 10203192 (Version 1)
Quarter: 2014Q2

REPORT INFORMATION
  Report Type: Spontaneous
  Country: US (occurrence: US)
  Receive Date: 20140529
  Receipt Date: 20140529
  Transmission Date: 20141212
  Serious: No
  Sender: FDA-Public Use
  Company Number: US-BIOGENIDEC-2014BI048995

PATIENT
  Age: 36 Year
  Sex: Female

DRUGS (1)
  1. TYSABRI [Suspect]
     Indication: MULTIPLE SCLEROSIS
     Route: 042
     Dates: start: 20140220

REACTIONS (4)
  - Pain [Recovered/Resolved]
  - Stress [Recovered/Resolved]
  - Emotional distress [Recovered/Resolved]
  - Screaming [Recovered/Resolved]
